FAERS Safety Report 7336269 (Version 4)
Quarter: 2012Q4

REPORT INFORMATION
  Report Type: 
  Country: DE (occurrence: DE)
  Receive Date: 20100330
  Receipt Date: 20120928
  Transmission Date: 20130627
  Serious: Yes (Disabling, Other)
  Sender: FDA-Public Use
  Company Number: DE-ROCHE-GNE299662

PATIENT
  Age: 71 Year
  Sex: Female

DRUGS (3)
  1. LUCENTIS [Suspect]
     Indication: AGE-RELATED MACULAR DEGENERATION
     Dosage: UNK
     Route: 050
     Dates: start: 2007
  2. LUCENTIS [Suspect]
     Route: 050
     Dates: start: 20100105
  3. LUCENTIS [Suspect]
     Route: 050
     Dates: start: 20100309

REACTIONS (5)
  - Conjunctival haemorrhage [Unknown]
  - Vitreous haemorrhage [Unknown]
  - Cataract [Unknown]
  - Blindness unilateral [Unknown]
  - Age-related macular degeneration [Unknown]
